FAERS Safety Report 8962618 (Version 1)
Quarter: 2012Q4

REPORT INFORMATION
  Report Type: 
  Country: AU (occurrence: AU)
  Receive Date: 20121214
  Receipt Date: 20121214
  Transmission Date: 20130627
  Serious: Yes (Other)
  Sender: FDA-Public Use
  Company Number: PHHY2012AU112748

PATIENT
  Age: 32 Year
  Sex: Male

DRUGS (3)
  1. CLOZAPINE [Suspect]
  2. VENLAFAXINE [Suspect]
  3. RISPERIDONE [Concomitant]

REACTIONS (7)
  - Left ventricular dysfunction [Unknown]
  - Condition aggravated [Unknown]
  - C-reactive protein increased [Unknown]
  - Troponin increased [Unknown]
  - Blood creatine phosphokinase increased [Unknown]
  - Pyrexia [Unknown]
  - Tachycardia [Unknown]
